FAERS Safety Report 17704243 (Version 5)
Quarter: 2021Q2

REPORT INFORMATION
  Report Type: Report from Study
  Country: US (occurrence: US)
  Receive Date: 20200424
  Receipt Date: 20210419
  Transmission Date: 20210716
  Serious: Yes (Other)
  Sender: FDA-Public Use
  Company Number: US-SHIRE-US202014405

PATIENT
  Age: 73 Year
  Sex: Female
  Weight: 74.83 kg

DRUGS (5)
  1. TEDUGLUTIDE [Suspect]
     Active Substance: TEDUGLUTIDE
     Indication: SHORT-BOWEL SYNDROME
     Dosage: 0.35 DOSAGE FORM
     Route: 058
     Dates: start: 20200417
  2. TEDUGLUTIDE [Suspect]
     Active Substance: TEDUGLUTIDE
     Indication: SHORT-BOWEL SYNDROME
     Dosage: 0.35 DOSAGE FORM
     Route: 058
     Dates: start: 20200417
  3. OCTREOTIDE [OCTREOTIDE ACETATE] [Concomitant]
     Active Substance: OCTREOTIDE ACETATE
     Indication: DIARRHOEA
     Dosage: UNK
  4. TEDUGLUTIDE [Suspect]
     Active Substance: TEDUGLUTIDE
     Indication: SHORT-BOWEL SYNDROME
     Dosage: 0.35 DOSAGE FORM
     Route: 058
     Dates: start: 20200417
  5. TEDUGLUTIDE [Suspect]
     Active Substance: TEDUGLUTIDE
     Indication: SHORT-BOWEL SYNDROME
     Dosage: 0.35 DOSAGE FORM
     Route: 058
     Dates: start: 20200417

REACTIONS (7)
  - Diarrhoea [Recovered/Resolved]
  - Blood creatinine increased [Unknown]
  - Accident [Recovered/Resolved]
  - Weight decreased [Unknown]
  - Depression [Unknown]
  - Anal incontinence [Recovering/Resolving]
  - Abdominal distension [Unknown]

NARRATIVE: CASE EVENT DATE: 20200420
